FAERS Safety Report 4598833-4 (Version None)
Quarter: 2005Q1

REPORT INFORMATION
  Report Type: 
  Country: None (occurrence: None)
  Receive Date: 20050304
  Receipt Date: 20050209
  Transmission Date: 20050727
  Serious: Yes (Hospitalization)
  Sender: FDA-Public Use
  Company Number: US-JNJFOC-20050202977

PATIENT
  Sex: Female
  Weight: 72.58 kg

DRUGS (15)
  1. REMICADE [Suspect]
     Route: 042
  2. REMICADE [Suspect]
     Route: 042
  3. REMICADE [Suspect]
     Route: 042
  4. IMURAN [Concomitant]
  5. ESTRADIAL [Concomitant]
  6. POTASSIUM CHLORIDE [Concomitant]
  7. MULTI-VITAMIN [Concomitant]
  8. MULTI-VITAMIN [Concomitant]
  9. MULTI-VITAMIN [Concomitant]
  10. MULTI-VITAMIN [Concomitant]
  11. MULTI-VITAMIN [Concomitant]
  12. MULTI-VITAMIN [Concomitant]
  13. MULTI-VITAMIN [Concomitant]
  14. MULTI-VITAMIN [Concomitant]
  15. PREDNISONE [Concomitant]

REACTIONS (5)
  - ARTHRALGIA [None]
  - COLITIS ULCERATIVE [None]
  - CONTUSION [None]
  - RASH [None]
  - VISION BLURRED [None]
